FAERS Safety Report 8258203-4 (Version None)
Quarter: 2012Q2

REPORT INFORMATION
  Report Type: 
  Country: None (occurrence: None)
  Receive Date: 20120404
  Receipt Date: 20120329
  Transmission Date: 20120825
  Serious: Yes (Other)
  Sender: FDA-Public Use
  Company Number: PHEH2010US00516

PATIENT
  Sex: Female

DRUGS (32)
  1. SOLU-MEDROL [Concomitant]
  2. CORDARONE [Concomitant]
     Route: 042
  3. AMOXICILLIN [Concomitant]
  4. VENTOLIN [Concomitant]
     Dosage: 2 PUFFS, PRN
  5. DOPAMINE HCL [Concomitant]
     Route: 042
  6. SEREVENT [Concomitant]
  7. ACCOLATE [Concomitant]
  8. ADRIAMYCIN PFS [Concomitant]
  9. ZOMETA [Suspect]
     Dosage: UNK UKN, UNK
     Route: 042
  10. PROTONIX [Concomitant]
  11. CYTOXAN [Concomitant]
  12. OXYCONTIN [Concomitant]
  13. DELTASONE [Concomitant]
  14. ELAVIL [Concomitant]
  15. MOTRIN [Concomitant]
     Dosage: UNK UKN, Q6H
  16. CLINDAMYCIN [Concomitant]
  17. ADVAIR DISKUS 100/50 [Concomitant]
     Dosage: UNK UKN, BID
  18. ZOLOFT [Concomitant]
     Dosage: 1 DF, QD
     Route: 048
  19. DILAUDID [Concomitant]
     Route: 042
  20. NARCAN [Concomitant]
     Dosage: 0.4 MG, UNK
     Route: 042
  21. FENTANYL [Concomitant]
     Dosage: 1 DF, EVERY 3 DAYS
     Route: 061
  22. BENADRYL [Concomitant]
  23. CHEMOTHERAPEUTICS [Concomitant]
     Dosage: UNK UKN, UNK
     Dates: end: 20080901
  24. DULCOLAX [Concomitant]
  25. TAXOL [Concomitant]
  26. ASTELIN [Concomitant]
  27. FLOVENT [Concomitant]
  28. CLARINEX-D [Concomitant]
  29. SINGULAIR [Concomitant]
     Dosage: 1 DF, PRN
     Route: 048
  30. LOVENOX [Concomitant]
     Dosage: 80 MG, UNK
     Route: 048
  31. AROMASIN [Concomitant]
  32. ALLEGRA [Concomitant]

REACTIONS (28)
  - OSTEONECROSIS OF JAW [None]
  - PAIN IN JAW [None]
  - PAIN [None]
  - ANXIETY [None]
  - HEPATIC STEATOSIS [None]
  - BREAST CANCER METASTATIC [None]
  - BREAST ENLARGEMENT [None]
  - ANAEMIA [None]
  - METASTASES TO SPINE [None]
  - METASTASES TO BONE [None]
  - TOOTH INFECTION [None]
  - PRIMARY SEQUESTRUM [None]
  - ATELECTASIS [None]
  - ARTHRALGIA [None]
  - CHEST PAIN [None]
  - INTERVERTEBRAL DISC DEGENERATION [None]
  - THROMBOCYTOPENIA [None]
  - EXPOSED BONE IN JAW [None]
  - GENERAL PHYSICAL HEALTH DETERIORATION [None]
  - DECREASED INTEREST [None]
  - BONE PAIN [None]
  - DYSPNOEA [None]
  - DEPRESSION [None]
  - DIVERTICULUM [None]
  - LYMPHADENOPATHY [None]
  - ASTHMA [None]
  - SPLENOMEGALY [None]
  - SYRINGOMYELIA [None]
